FAERS Safety Report 6229733-1 (Version None)
Quarter: 2009Q2

REPORT INFORMATION
  Report Type: 
  Country: None (occurrence: None)
  Receive Date: 20090615
  Receipt Date: 20090610
  Transmission Date: 20091009
  Serious: No
  Sender: FDA-Public Use
  Company Number: US-B.I. PHARMACEUTICALS,INC./RIDGEFIELD-2009-BP-06634BP

PATIENT
  Sex: Male

DRUGS (11)
  1. COMBIVENT [Suspect]
     Indication: BRONCHIAL DISORDER
  2. ASPIRIN [Concomitant]
  3. METOPROLOL SUCCINATE [Concomitant]
  4. PLAVIX [Concomitant]
  5. PROPOXYPHENE HCL CAP [Concomitant]
  6. LYRICA [Concomitant]
  7. URORATRAL [Concomitant]
  8. LEVOTHYROXINE [Concomitant]
  9. LIPITOR [Concomitant]
  10. RANITIDINE [Concomitant]
  11. ALLEGRA-D 12 HOUR [Concomitant]

REACTIONS (1)
  - DYSPNOEA [None]
